FAERS Safety Report 6192819-4 (Version None)
Quarter: 2009Q2

REPORT INFORMATION
  Report Type: 
  Country: None (occurrence: None)
  Receive Date: 20090518
  Receipt Date: 20090507
  Transmission Date: 20091009
  Serious: Yes (Congenital Anomaly)
  Sender: FDA-Public Use
  Company Number: DE-NOVOPROD-286990

PATIENT
  Sex: Male
  Weight: 1.45 kg

DRUGS (1)
  1. LEVEMIR [Suspect]
     Indication: DRUG USE FOR UNKNOWN INDICATION
     Dosage: UNK, QD
     Route: 064
     Dates: end: 20080728

REACTIONS (3)
  - CLEFT LIP [None]
  - CLEFT LIP AND PALATE [None]
  - PREMATURE BABY [None]
